FAERS Safety Report 5287684-3 (Version None)
Quarter: 2007Q2

REPORT INFORMATION
  Report Type: 
  Country: None (occurrence: None)
  Receive Date: 20070405
  Receipt Date: 20070329
  Transmission Date: 20071010
  Serious: Yes (Hospitalization)
  Sender: FDA-Public Use
  Company Number: JP-BRACCO-BRO-011276

PATIENT
  Sex: Female
  Weight: 57 kg

DRUGS (4)
  1. IOPAMIRON [Suspect]
     Dosage: 20 ML/MIN
     Route: 042
     Dates: start: 20070206, end: 20070206
  2. IOPAMIRON [Suspect]
     Dosage: 20 ML/MIN
     Route: 042
     Dates: start: 20070206, end: 20070206
  3. NORVASC [Concomitant]
     Route: 050
  4. LOCHOL                             /01224501/ [Concomitant]
     Route: 050

REACTIONS (7)
  - BLOOD PRESSURE DECREASED [None]
  - CHILLS [None]
  - NAUSEA [None]
  - PAIN [None]
  - RENAL FAILURE ACUTE [None]
  - RHABDOMYOLYSIS [None]
  - SHOCK [None]
